FAERS Safety Report 25823100 (Version 1)
Quarter: 2025Q3

REPORT INFORMATION
  Report Type: Spontaneous
  Country: US (occurrence: US)
  Receive Date: 20250919
  Receipt Date: 20250919
  Transmission Date: 20251020
  Serious: No
  Sender: ROCHE
  Company Number: US-ROCHE-10000391846

PATIENT
  Sex: Female

DRUGS (1)
  1. XOLAIR [Suspect]
     Active Substance: OMALIZUMAB
     Indication: Idiopathic urticaria
     Dosage: STRENGTH- 300 MG/ML
     Route: 058
     Dates: start: 202506

REACTIONS (3)
  - Chest discomfort [Unknown]
  - Nausea [Unknown]
  - Dizziness [Unknown]
